FAERS Safety Report 9434208 (Version 1)
Quarter: 2013Q3

REPORT INFORMATION
  Report Type: Spontaneous
  Country: US (occurrence: None)
  Receive Date: 20130730
  Receipt Date: 20130730
  Transmission Date: 20140515
  Serious: Yes (Other)
  Sender: FDA-Public Use
  Company Number: None

PATIENT
  Age: 17 Year
  Sex: Male
  Weight: 70.31 kg

DRUGS (7)
  1. PRISTIQ [Suspect]
     Indication: ANXIETY
     Route: 048
     Dates: start: 20121021
  2. PRISTIQ [Suspect]
     Indication: VOMITING
     Route: 048
     Dates: start: 20121021
  3. NASACORT [Concomitant]
  4. ZOFRAN [Concomitant]
  5. PHENERGAN [Concomitant]
  6. ZYRTEC [Concomitant]
  7. PREVACID [Concomitant]

REACTIONS (5)
  - Activities of daily living impaired [None]
  - Withdrawal syndrome [None]
  - Headache [None]
  - Dizziness [None]
  - Feeling abnormal [None]
